FAERS Safety Report 15530143 (Version 2)
Quarter: 2018Q4

REPORT INFORMATION
  Report Type: Spontaneous
  Country: US (occurrence: US)
  Receive Date: 20181018
  Receipt Date: 20181029
  Transmission Date: 20190205
  Serious: No
  Sender: FDA-Public Use
  Company Number: US-PFIZER INC-2018420700

PATIENT
  Age: 52 Year
  Sex: Female
  Weight: 87.54 kg

DRUGS (1)
  1. LYRICA [Suspect]
     Active Substance: PREGABALIN
     Indication: FIBROMYALGIA
     Dosage: 150 MG, 2X/DAY
     Route: 048

REACTIONS (4)
  - Formication [Unknown]
  - Rash [Unknown]
  - Pruritus [Unknown]
  - Withdrawal syndrome [Unknown]
